FAERS Safety Report 11649734 (Version 1)
Quarter: 2015Q4

REPORT INFORMATION
  Report Type: Spontaneous
  Country: US (occurrence: US)
  Receive Date: 20151021
  Receipt Date: 20151021
  Transmission Date: 20160304
  Serious: Yes (Other)
  Sender: FDA-Public Use
  Company Number: US-TEVA-602306USA

PATIENT
  Age: 72 Year
  Sex: Female
  Weight: 56.3 kg

DRUGS (12)
  1. JUXTAPID [Suspect]
     Active Substance: LOMITAPIDE MESYLATE
     Indication: TYPE IIA HYPERLIPIDAEMIA
     Dates: start: 20130708, end: 201412
  2. CRESTOR [Concomitant]
     Active Substance: ROSUVASTATIN CALCIUM
  3. VITAMIN D3 [Concomitant]
     Active Substance: CHOLECALCIFEROL
  4. PRESERVISION [Concomitant]
     Active Substance: MINERALS\VITAMINS
  5. DIFLUCAN [Suspect]
     Active Substance: FLUCONAZOLE
     Indication: FUNGAL INFECTION
     Route: 065
     Dates: start: 201412
  6. EFFIENT [Concomitant]
     Active Substance: PRASUGREL HYDROCHLORIDE
  7. PANTOPRAZOLE SODIUM. [Concomitant]
     Active Substance: PANTOPRAZOLE SODIUM
  8. METOPROLOL SUCCINATE. [Concomitant]
     Active Substance: METOPROLOL SUCCINATE
  9. ASPIRIN. [Concomitant]
     Active Substance: ASPIRIN
  10. AMOXICILLIN. [Suspect]
     Active Substance: AMOXICILLIN
     Indication: TOOTH INFECTION
     Route: 065
     Dates: start: 201412
  11. NITROGLYCERIN. [Concomitant]
     Active Substance: NITROGLYCERIN
  12. OMEGA 3-6-9 [Concomitant]
     Active Substance: FISH OIL

REACTIONS (12)
  - Nausea [Recovered/Resolved]
  - Therapy cessation [Unknown]
  - Tooth infection [Recovered/Resolved]
  - Contusion [Unknown]
  - Abdominal distension [Recovered/Resolved]
  - Eructation [Recovered/Resolved]
  - Hepatomegaly [Recovered/Resolved]
  - Gastrointestinal sounds abnormal [Recovered/Resolved]
  - Contraindicated drug administered [Unknown]
  - Fungal infection [Recovered/Resolved]
  - Liver function test abnormal [Recovered/Resolved]
  - Dyspepsia [Recovered/Resolved]

NARRATIVE: CASE EVENT DATE: 201412
